FAERS Safety Report 7532815-5 (Version None)
Quarter: 2011Q2

REPORT INFORMATION
  Report Type: 
  Country: None (occurrence: None)
  Receive Date: 20110608
  Receipt Date: 20110601
  Transmission Date: 20111010
  Serious: Yes (Hospitalization, Disabling)
  Sender: FDA-Public Use
  Company Number: CH-PFIZER INC-2011117965

PATIENT
  Age: 27 Year
  Sex: Female

DRUGS (5)
  1. CLOZAPINE [Suspect]
     Dosage: 500 MG, UNK
     Route: 048
     Dates: start: 20101112
  2. ABILIFY [Suspect]
     Dosage: 10 MG, 1X/DAY
     Route: 048
     Dates: start: 20090515, end: 20110120
  3. DEPO-PROVERA [Suspect]
     Indication: CONTRACEPTION
     Dosage: 150 MG, UNK
     Dates: start: 20090324, end: 20110115
  4. CLOZAPINE [Suspect]
     Dosage: 500 MG, UNK
     Route: 048
     Dates: start: 20081001, end: 20090301
  5. VALPROATE SODIUM [Concomitant]
     Dosage: 1000 MG, 1X/DAY
     Route: 042

REACTIONS (1)
  - CEREBRAL INFARCTION [None]
